FAERS Safety Report 20956239 (Version 1)
Quarter: 2022Q2

REPORT INFORMATION
  Report Type: Spontaneous
  Country: US (occurrence: None)
  Receive Date: 20220614
  Receipt Date: 20220614
  Transmission Date: 20220721
  Serious: No
  Sender: FDA-Public Use
  Company Number: None

PATIENT
  Age: 51 Year
  Sex: Male
  Weight: 154 kg

DRUGS (1)
  1. NIRMATRELVIR\RITONAVIR [Suspect]
     Active Substance: NIRMATRELVIR\RITONAVIR
     Indication: COVID-19
     Dates: start: 20220504, end: 20220508

REACTIONS (5)
  - Nasal congestion [None]
  - Back pain [None]
  - Cough [None]
  - Dysgeusia [None]
  - Myalgia [None]

NARRATIVE: CASE EVENT DATE: 20220505
